FAERS Safety Report 10205612 (Version 4)
Quarter: 2015Q3

REPORT INFORMATION
  Report Type: Report from Study
  Country: BR (occurrence: BR)
  Receive Date: 20140529
  Receipt Date: 20150727
  Transmission Date: 20151125
  Serious: Yes (Hospitalization, Other)
  Sender: FDA-Public Use
  Company Number: PHHY2014BR065861

PATIENT
  Sex: Male
  Weight: 75 kg

DRUGS (6)
  1. ZOTEON PODHALER [Suspect]
     Active Substance: TOBRAMYCIN
     Indication: CYSTIC FIBROSIS
     Dosage: 8 DF, QD (3 CARTONS WERE USED)
     Route: 055
     Dates: start: 20140401, end: 201412
  2. CREON [Concomitant]
     Active Substance: PANCRELIPASE AMYLASE\PANCRELIPASE LIPASE\PANCRELIPASE PROTEASE
     Indication: PRODUCT USED FOR UNKNOWN INDICATION
     Dosage: 2 DF, QD
     Route: 065
  3. AZITHROMYCIN [Concomitant]
     Active Substance: AZITHROMYCIN ANHYDROUS
     Indication: CYSTIC FIBROSIS
     Dosage: 500 MG, QD
     Route: 065
  4. TOBI [Suspect]
     Active Substance: TOBRAMYCIN
     Indication: CYSTIC FIBROSIS
     Dosage: 600 MG, QD
     Route: 042
  5. DORNASE ALFA [Concomitant]
     Active Substance: DORNASE ALFA
     Indication: CYSTIC FIBROSIS
     Dosage: UNK, QD
     Route: 055
  6. COLISTIN [Concomitant]
     Active Substance: COLISTIN
     Indication: FIBROSIS
     Dosage: UNK, BID
     Route: 065

REACTIONS (6)
  - Bronchial secretion retention [Recovering/Resolving]
  - Infective pulmonary exacerbation of cystic fibrosis [Recovering/Resolving]
  - Spirometry abnormal [Recovering/Resolving]
  - Dyspnoea [Not Recovered/Not Resolved]
  - Deafness [Not Recovered/Not Resolved]
  - General physical health deterioration [Recovering/Resolving]
